FAERS Safety Report 17078652 (Version 3)
Quarter: 2020Q2

REPORT INFORMATION
  Report Type: Report from Study
  Country: JP (occurrence: JP)
  Receive Date: 20191127
  Receipt Date: 20200626
  Transmission Date: 20200713
  Serious: Yes (Hospitalization)
  Sender: FDA-Public Use
  Company Number: JP-B.I. PHARMACEUTICALS,INC./RIDGEFIELD-2018-NB-001454

PATIENT
  Age: 65 Year
  Sex: Male
  Weight: 53.7 kg

DRUGS (15)
  1. PIRESPA [Concomitant]
     Active Substance: PIRFENIDONE
     Route: 065
     Dates: start: 20161129, end: 20161226
  2. NEXIUM [Concomitant]
     Active Substance: ESOMEPRAZOLE MAGNESIUM
     Indication: PRODUCT USED FOR UNKNOWN INDICATION
     Route: 065
     Dates: start: 20161226
  3. CLARITH [Concomitant]
     Active Substance: CLARITHROMYCIN
     Indication: PRODUCT USED FOR UNKNOWN INDICATION
     Route: 065
     Dates: start: 20161114, end: 20161128
  4. PIRESPA [Concomitant]
     Active Substance: PIRFENIDONE
     Route: 065
     Dates: start: 20161114, end: 20161128
  5. PIRESPA [Concomitant]
     Active Substance: PIRFENIDONE
     Route: 065
     Dates: start: 20170425, end: 20171113
  6. NESINA [Concomitant]
     Active Substance: ALOGLIPTIN BENZOATE
     Indication: PRODUCT USED FOR UNKNOWN INDICATION
     Route: 065
     Dates: start: 20160330
  7. NIFEDIPINE. [Concomitant]
     Active Substance: NIFEDIPINE
     Indication: PRODUCT USED FOR UNKNOWN INDICATION
     Route: 065
     Dates: start: 20180628
  8. TAZOPIPE [Concomitant]
     Active Substance: PIPERACILLIN SODIUM\TAZOBACTAM SODIUM
     Indication: PRODUCT USED FOR UNKNOWN INDICATION
     Route: 065
     Dates: start: 20180520, end: 20180528
  9. BIBF 1120 [Suspect]
     Active Substance: NINTEDANIB
     Indication: IDIOPATHIC PULMONARY FIBROSIS
     Route: 065
     Dates: start: 20160330, end: 20161114
  10. BIBF 1120 [Suspect]
     Active Substance: NINTEDANIB
     Route: 065
     Dates: start: 20180612, end: 20180627
  11. BIBF 1120 [Suspect]
     Active Substance: NINTEDANIB
     Route: 065
     Dates: start: 20180709, end: 20181001
  12. PIRESPA [Concomitant]
     Active Substance: PIRFENIDONE
     Route: 065
     Dates: start: 20171114, end: 20171225
  13. BIBF 1120 [Suspect]
     Active Substance: NINTEDANIB
     Route: 065
     Dates: start: 20180105, end: 20180611
  14. PIRESPA [Concomitant]
     Active Substance: PIRFENIDONE
     Indication: IDIOPATHIC PULMONARY FIBROSIS
     Route: 065
     Dates: start: 20161114, end: 20180523
  15. PIRESPA [Concomitant]
     Active Substance: PIRFENIDONE
     Route: 065
     Dates: start: 20161227, end: 20170424

REACTIONS (5)
  - Pneumonia bacterial [Recovered/Resolved]
  - Cough [Not Recovered/Not Resolved]
  - Pneumothorax [Recovered/Resolved]
  - Viral upper respiratory tract infection [Recovered/Resolved]
  - Dyspnoea [Unknown]

NARRATIVE: CASE EVENT DATE: 20161114
